FAERS Safety Report 9924574 (Version 3)
Quarter: 2015Q1

REPORT INFORMATION
  Report Type: Spontaneous
  Country: TR (occurrence: None)
  Receive Date: 20140220
  Receipt Date: 20150112
  Transmission Date: 20150721
  Serious: Yes (Other)
  Sender: FDA-Public Use
  Company Number: OTH-LIT-2014004

PATIENT
  Age: 3 Day
  Sex: Female

DRUGS (1)
  1. CARBAGLU [Suspect]
     Active Substance: CARGLUMIC ACID
     Indication: HYPERAMMONAEMIA
     Route: 048

REACTIONS (4)
  - Drug ineffective [None]
  - No therapeutic response [None]
  - Peritoneal dialysis [None]
  - Hyperammonaemia [None]
